FAERS Safety Report 6392159-4 (Version None)
Quarter: 2009Q4

REPORT INFORMATION
  Report Type: 
  Country: None (occurrence: None)
  Receive Date: 20091005
  Receipt Date: 20090922
  Transmission Date: 20100525
  Serious: Yes (Hospitalization)
  Sender: FDA-Public Use
  Company Number: 2009-03874

PATIENT
  Age: 78 Year
  Sex: Female
  Weight: 58.9 kg

DRUGS (15)
  1. VELCADE [Suspect]
     Indication: MULTIPLE MYELOMA
     Dosage: 1.3 MG/M2, INTRAVENOUS
     Route: 042
     Dates: start: 20080707, end: 20080829
  2. CALCIUM (CALCIUM) [Concomitant]
  3. OMEPRAZOLE [Concomitant]
  4. ALPRAZOLAM [Concomitant]
  5. LIPITOR [Concomitant]
  6. SODIUM BICARBONATE IN PLASTIC CONTAINER [Concomitant]
  7. MARCUMAR [Concomitant]
  8. HYTRIN [Concomitant]
  9. BUMETANIDE [Concomitant]
  10. MOVICOL (SODIUM BICARBONATE, SODIUM CHLORIDE, MAROGOL, POTASSIUM CHLOR [Concomitant]
  11. ACYCLOVIR [Concomitant]
  12. LITICAN (ALIZAPRIDE) [Concomitant]
  13. BISOPROLOL FUMARATE [Concomitant]
  14. ARANESP [Concomitant]
  15. DEXAMETHASONE 0.5MG TAB [Concomitant]

REACTIONS (12)
  - ASTHENIA [None]
  - BLOOD URIC ACID INCREASED [None]
  - CONFUSIONAL STATE [None]
  - DECREASED APPETITE [None]
  - FATIGUE [None]
  - GENERAL PHYSICAL HEALTH DETERIORATION [None]
  - HAEMODIALYSIS [None]
  - LETHARGY [None]
  - MALIGNANT NEOPLASM PROGRESSION [None]
  - MULTIPLE MYELOMA [None]
  - RENAL IMPAIRMENT [None]
  - TACHYCARDIA [None]
